FAERS Safety Report 12707474 (Version 1)
Quarter: 2016Q3

REPORT INFORMATION
  Report Type: Report from Study
  Country: US (occurrence: US)
  Receive Date: 20160901
  Receipt Date: 20160901
  Transmission Date: 20161109
  Serious: Yes (Other)
  Sender: FDA-Public Use
  Company Number: PHEH2014US002809

PATIENT
  Age: 31 Year
  Sex: Female

DRUGS (4)
  1. GILENYA [Suspect]
     Active Substance: FINGOLIMOD HYDROCHLORIDE
     Indication: MULTIPLE SCLEROSIS
     Dosage: 0.5 MG, QD
     Route: 048
     Dates: start: 20130829, end: 20140209
  2. LYRICA [Suspect]
     Active Substance: PREGABALIN
     Indication: NEURALGIA
     Dosage: 300 MG, UNK
     Route: 065
  3. LYRICA [Suspect]
     Active Substance: PREGABALIN
     Dosage: 150 MG, UNK
     Route: 065
  4. LEXAPRO [Concomitant]
     Active Substance: ESCITALOPRAM OXALATE
     Indication: PRODUCT USED FOR UNKNOWN INDICATION
     Route: 065

REACTIONS (18)
  - Visual impairment [Unknown]
  - Facial pain [Unknown]
  - Head discomfort [Unknown]
  - Post herpetic neuralgia [Unknown]
  - Pruritus [Unknown]
  - Screaming [Unknown]
  - Scar [Unknown]
  - Photophobia [Unknown]
  - Rash [Not Recovered/Not Resolved]
  - Feeling abnormal [Unknown]
  - Dizziness [Unknown]
  - Herpes zoster [Not Recovered/Not Resolved]
  - Burning sensation [Unknown]
  - Eye pain [Unknown]
  - Pain [Unknown]
  - Ear discomfort [Unknown]
  - Crying [Unknown]
  - Fall [Unknown]

NARRATIVE: CASE EVENT DATE: 20140206
